FAERS Safety Report 7244855-4 (Version None)
Quarter: 2011Q1

REPORT INFORMATION
  Report Type: 
  Country: None (occurrence: None)
  Receive Date: 20110126
  Receipt Date: 20110120
  Transmission Date: 20110831
  Serious: Yes (Other)
  Sender: FDA-Public Use
  Company Number: US-PFIZER INC-2011016402

PATIENT
  Age: 65 Year
  Sex: Female

DRUGS (1)
  1. GEODON [Suspect]

REACTIONS (1)
  - EXTRAPYRAMIDAL DISORDER [None]
